FAERS Safety Report 6092282-8 (Version None)
Quarter: 2009Q1

REPORT INFORMATION
  Report Type: 
  Country: None (occurrence: None)
  Receive Date: 20090223
  Receipt Date: 20090223
  Transmission Date: 20090719
  Serious: Yes (Hospitalization)
  Sender: FDA-Public Use
  Company Number: None

PATIENT
  Sex: Female
  Weight: 85 kg

DRUGS (5)
  1. TEMOZOLOMIDE [Suspect]
     Dosage: 1450 MG
  2. BACTRIM [Concomitant]
  3. DEPAKENE [Concomitant]
  4. GLUCOPHAGE [Concomitant]
  5. MEDROL [Concomitant]

REACTIONS (3)
  - APHASIA [None]
  - HEADACHE [None]
  - VOMITING [None]
